FAERS Safety Report 10190910 (Version 3)
Quarter: 2014Q2

REPORT INFORMATION
  Report Type: Spontaneous
  Country: GB (occurrence: GB)
  Receive Date: 20140523
  Receipt Date: 20140605
  Transmission Date: 20141212
  Serious: Yes (Other)
  Sender: FDA-Public Use
  Company Number: GB-RANBAXY-2014RR-81541

PATIENT
  Sex: Female

DRUGS (6)
  1. FLUCLOXACILLIN [Suspect]
     Indication: PRODUCT USED FOR UNKNOWN INDICATION
     Dosage: UNK
     Route: 065
  2. GENTAMICIN [Suspect]
     Indication: PRODUCT USED FOR UNKNOWN INDICATION
     Dosage: UNK
     Route: 065
  3. IBUPROFEN [Suspect]
     Indication: PRODUCT USED FOR UNKNOWN INDICATION
     Dosage: UNK
     Route: 065
  4. METFORMIN [Suspect]
     Indication: DIABETES MELLITUS
     Dosage: UNK
     Route: 065
  5. APIXABAN [Suspect]
     Indication: HIP ARTHROPLASTY
     Dosage: UNK
     Route: 065
  6. APIXABAN [Suspect]
     Indication: KNEE ARTHROPLASTY
     Route: 065

REACTIONS (3)
  - Renal failure [Unknown]
  - Drug interaction [Unknown]
  - Blood pressure decreased [Unknown]
